FAERS Safety Report 8563794-X (Version None)
Quarter: 2012Q3

REPORT INFORMATION
  Report Type: 
  Country: None (occurrence: None)
  Receive Date: 20120803
  Receipt Date: 20120723
  Transmission Date: 20120928
  Serious: No
  Sender: FDA-Public Use
  Company Number: US-009507513-1207USA009176

PATIENT

DRUGS (1)
  1. PROPECIA [Suspect]
     Indication: ALOPECIA
     Route: 048

REACTIONS (6)
  - ERECTILE DYSFUNCTION [None]
  - FEELING ABNORMAL [None]
  - LOSS OF LIBIDO [None]
  - GENITAL DISORDER MALE [None]
  - COGNITIVE DISORDER [None]
  - ADVERSE EVENT [None]
